FAERS Safety Report 6200745-7 (Version None)
Quarter: 2009Q2

REPORT INFORMATION
  Report Type: 
  Country: None (occurrence: None)
  Receive Date: 20090522
  Receipt Date: 20080717
  Transmission Date: 20091009
  Serious: No
  Sender: FDA-Public Use
  Company Number: US-ALEXION-A200800164

PATIENT
  Sex: Male

DRUGS (20)
  1. SOLIRIS [Suspect]
     Indication: PAROXYSMAL NOCTURNAL HAEMOGLOBINURIA
     Dosage: 600 MG, SINGLE
     Route: 042
     Dates: start: 20080424, end: 20080424
  2. SOLIRIS [Suspect]
     Dosage: 600 MG, SINGLE
     Route: 042
     Dates: start: 20080501, end: 20080501
  3. SOLIRIS [Suspect]
     Dosage: 600 MG, SINGLE
     Route: 042
     Dates: start: 20080508, end: 20080508
  4. SOLIRIS [Suspect]
     Dosage: 600 MG, SINGLE
     Route: 042
     Dates: start: 20080515, end: 20080515
  5. SOLIRIS [Suspect]
     Dosage: 900 MG, SINGLE
     Route: 042
     Dates: start: 20080522, end: 20080522
  6. SOLIRIS [Suspect]
     Dosage: 900 MG, SINGLE
     Route: 042
     Dates: start: 20080605, end: 20080605
  7. SOLIRIS [Suspect]
     Dosage: 900 MG, SINGLE
     Route: 042
     Dates: start: 20080619, end: 20080619
  8. SOLIRIS [Suspect]
     Dosage: 900 MG, SINGLE
     Route: 042
     Dates: start: 20080703, end: 20080703
  9. SOLIRIS [Suspect]
     Dosage: 900 MG, SINGLE
     Route: 042
     Dates: start: 20080717, end: 20080717
  10. SOLIRIS [Suspect]
     Dosage: 900 MG, SINGLE
     Route: 042
     Dates: start: 20080731, end: 20080731
  11. SOLIRIS [Suspect]
     Dosage: 900 MG, SINGLE
     Route: 042
     Dates: start: 20080815, end: 20080815
  12. SOLIRIS [Suspect]
     Dosage: 900 MG, SINGLE
     Route: 042
     Dates: start: 20080828, end: 20080828
  13. SOLIRIS [Suspect]
     Dosage: 900 MG, SINGLE
     Route: 042
     Dates: start: 20080911, end: 20080911
  14. ARANESP [Suspect]
     Indication: RED BLOOD CELL COUNT
     Dosage: UNK, SINGLE
     Route: 051
     Dates: start: 20080601, end: 20080601
  15. ARANESP [Suspect]
     Dosage: UNK, SINGLE
     Route: 051
     Dates: start: 20080701, end: 20080701
  16. CYCLOSPORINE [Suspect]
     Dosage: 225 MG, BID
     Route: 048
     Dates: start: 20080801
  17. PREDNISONE [Concomitant]
     Dosage: 20 MG, QD
  18. FOLIC ACID [Concomitant]
     Dosage: UNK, QD
  19. DANAZOL [Concomitant]
     Dosage: 300 MG, QD
  20. PANZOL [Concomitant]
     Indication: PROPHYLAXIS
     Dosage: INHALED, MONTHLY
     Route: 050

REACTIONS (9)
  - ABDOMINAL PAIN UPPER [None]
  - ASTHENIA [None]
  - BONE PAIN [None]
  - DIZZINESS [None]
  - FATIGUE [None]
  - HAEMOGLOBIN DECREASED [None]
  - MYALGIA [None]
  - NAUSEA [None]
  - PLATELET COUNT DECREASED [None]
